FAERS Safety Report 11668193 (Version 2)
Quarter: 2021Q4

REPORT INFORMATION
  Report Type: Spontaneous
  Country: CH (occurrence: CH)
  Receive Date: 20151027
  Receipt Date: 20211129
  Transmission Date: 20220303
  Serious: Yes (Life-Threatening, Hospitalization, Other)
  Sender: FDA-Public Use
  Company Number: CH-TEVA-601818ISR

PATIENT
  Age: 3 Year
  Sex: Male
  Weight: 13 kg

DRUGS (11)
  1. SULFAMETHOXAZOLE\TRIMETHOPRIM [Suspect]
     Active Substance: SULFAMETHOXAZOLE\TRIMETHOPRIM
     Indication: Pneumonia
     Dosage: INFUSION AMPOULE, STRENGTH 400MG/80MG
     Route: 042
     Dates: start: 20150902, end: 20150909
  2. NOVALGIN (METAMIZOLE SODIUM) [Suspect]
     Active Substance: METAMIZOLE SODIUM
     Indication: Pain
     Dosage: LIQUID DROPS, STRENGTH 500MG
     Route: 048
  3. DAFALGAN [Suspect]
     Active Substance: ACETAMINOPHEN
     Indication: Pain
     Route: 054
  4. MORPHINE [Concomitant]
     Active Substance: MORPHINE
     Indication: Pain
     Route: 042
     Dates: start: 20150831
  5. GENTAMICIN [Concomitant]
     Active Substance: GENTAMICIN
     Indication: Pneumonia
     Dosage: 97 MILLIGRAM DAILY;
     Route: 042
     Dates: start: 20150902, end: 20150904
  6. PREDNISOLONE [Concomitant]
     Active Substance: PREDNISOLONE
     Dosage: 26 MILLIGRAM DAILY;
     Route: 042
     Dates: start: 20150829
  7. Dormicum [Concomitant]
     Indication: Sedation
     Dosage: 0.15 MG/KG/H
     Route: 042
     Dates: start: 20150829, end: 20150909
  8. VENTOLIN [Concomitant]
     Active Substance: ALBUTEROL SULFATE
     Dosage: 30 MILLIGRAM DAILY;
     Route: 055
     Dates: start: 20150831
  9. CHLORAL HYDRATE [Concomitant]
     Active Substance: CHLORAL HYDRATE
     Dosage: 1280 MILLIGRAM DAILY;
     Route: 048
     Dates: start: 20150831
  10. ZOFRAN [Concomitant]
     Active Substance: ONDANSETRON HYDROCHLORIDE
     Indication: Vomiting
     Route: 042
  11. PROPOFOL [Concomitant]
     Active Substance: PROPOFOL
     Indication: Feeling of relaxation
     Dosage: 120 MILLIGRAM DAILY;
     Route: 042

REACTIONS (9)
  - Drug reaction with eosinophilia and systemic symptoms [Recovering/Resolving]
  - Pyrexia [Recovering/Resolving]
  - Rash maculo-papular [Recovering/Resolving]
  - Cheilitis [Recovering/Resolving]
  - Enanthema [Recovering/Resolving]
  - Conjunctivitis [Recovering/Resolving]
  - Eosinophilia [Recovering/Resolving]
  - Transaminases increased [Recovering/Resolving]
  - Lymphocyte count increased [Recovering/Resolving]

NARRATIVE: CASE EVENT DATE: 20150916
